FAERS Safety Report 15710810 (Version 3)
Quarter: 2019Q1

REPORT INFORMATION
  Report Type: Spontaneous
  Country: US (occurrence: US)
  Receive Date: 20181211
  Receipt Date: 20190225
  Transmission Date: 20190417
  Serious: No
  Sender: FDA-Public Use
  Company Number: US-SA-2018SA337247

PATIENT
  Age: 53 Year
  Sex: Male

DRUGS (1)
  1. TOUJEO [Suspect]
     Active Substance: INSULIN GLARGINE
     Dosage: 54 U, QD

REACTIONS (3)
  - Blood glucose increased [Unknown]
  - Underdose [Unknown]
  - Device operational issue [Unknown]
